FAERS Safety Report 4356507-9 (Version None)
Quarter: 2004Q2

REPORT INFORMATION
  Report Type: 
  Country: None (occurrence: None)
  Receive Date: 20040507
  Receipt Date: 20040426
  Transmission Date: 20050107
  Serious: Yes (Hospitalization)
  Sender: FDA-Public Use
  Company Number: FRWYE623605MAR04

PATIENT
  Age: 46 Year
  Sex: Female

DRUGS (3)
  1. RAPAMUNE [Suspect]
     Indication: PROPHYLAXIS AGAINST TRANSPLANT REJECTION
     Dosage: 8 MG 1X PER 1 DAY ORAL
     Route: 048
     Dates: start: 20030414
  2. CELLCEPT [Concomitant]
  3. PREDNISONE TAB [Concomitant]

REACTIONS (4)
  - ANAEMIA [None]
  - PERIRENAL HAEMATOMA [None]
  - RENAL FAILURE ACUTE [None]
  - RENAL LYMPHOCELE [None]
